FAERS Safety Report 9669625 (Version 2)
Quarter: 2013Q4

REPORT INFORMATION
  Report Type: Spontaneous
  Country: US (occurrence: US)
  Receive Date: 20131105
  Receipt Date: 20131127
  Transmission Date: 20140711
  Serious: Yes (Other)
  Sender: FDA-Public Use
  Company Number: US-TEVA-442470USA

PATIENT
  Age: 19 Year
  Sex: Female
  Weight: 55.84 kg

DRUGS (2)
  1. PARAGARD 380A [Suspect]
     Indication: CONTRACEPTION
     Route: 015
     Dates: start: 20130805, end: 20130916
  2. ADDERALL [Concomitant]

REACTIONS (1)
  - Device dislocation [Recovered/Resolved]
